FAERS Safety Report 14639393 (Version 1)
Quarter: 2018Q1

REPORT INFORMATION
  Report Type: Spontaneous
  Country: FR (occurrence: FR)
  Receive Date: 20180315
  Receipt Date: 20180315
  Transmission Date: 20180509
  Serious: Yes (Other)
  Sender: FDA-Public Use
  Company Number: FR-MERCK KGAA-2043777

PATIENT
  Age: 36 Year
  Sex: Female

DRUGS (1)
  1. NOVOTHYROX [Suspect]
     Active Substance: LEVOTHYROXINE SODIUM
     Indication: PRODUCT USED FOR UNKNOWN INDICATION

REACTIONS (12)
  - Loss of personal independence in daily activities [None]
  - Affect lability [None]
  - Feeling abnormal [None]
  - Fatigue [None]
  - Dizziness [None]
  - Social avoidant behaviour [None]
  - Poor quality sleep [None]
  - Vertigo [None]
  - General physical health deterioration [None]
  - Mood altered [None]
  - Headache [None]
  - Muscle spasms [None]

NARRATIVE: CASE EVENT DATE: 201705
